FAERS Safety Report 5310683-X (Version None)
Quarter: 2007Q2

REPORT INFORMATION
  Report Type: 
  Country: None (occurrence: None)
  Receive Date: 20070428
  Receipt Date: 20070416
  Transmission Date: 20071010
  Serious: Yes (Disabling, Other)
  Sender: FDA-Public Use
  Company Number: NL-PFIZER INC-2007031146

PATIENT
  Age: 61 Year
  Sex: Male

DRUGS (3)
  1. LIPITOR [Suspect]
     Indication: PROPHYLAXIS
     Route: 048
  2. GEMFIBROZIL [Suspect]
     Indication: HYPERCHOLESTEROLAEMIA
     Route: 048
  3. ALL OTHER THERAPEUTIC PRODUCTS [Concomitant]
     Route: 048

REACTIONS (5)
  - HYPOKINESIA [None]
  - JOINT SWELLING [None]
  - PAIN IN EXTREMITY [None]
  - TENDON INJURY [None]
  - VASCULAR INJURY [None]
